FAERS Safety Report 18773500 (Version 2)
Quarter: 2021Q2

REPORT INFORMATION
  Report Type: Spontaneous
  Country: None (occurrence: US)
  Receive Date: 20210122
  Receipt Date: 20210514
  Transmission Date: 20210717
  Serious: Yes (Other)
  Sender: FDA-Public Use
  Company Number: US-GLAXOSMITHKLINE-US2021GSK014342

PATIENT
  Sex: Male

DRUGS (16)
  1. RANITIDINE CAPSULE [Suspect]
     Active Substance: RANITIDINE
     Dosage: 150 MG, WE
     Route: 065
     Dates: start: 198301, end: 202002
  2. ZANTAC [Suspect]
     Active Substance: RANITIDINE HYDROCHLORIDE
     Dosage: 150 MG, WE
     Route: 065
     Dates: start: 198301, end: 202002
  3. ZANTAC [Suspect]
     Active Substance: RANITIDINE HYDROCHLORIDE
     Indication: INTESTINAL ULCER
     Dosage: 75 MG BOTH
     Route: 065
     Dates: start: 198301, end: 202002
  4. ZANTAC [Suspect]
     Active Substance: RANITIDINE HYDROCHLORIDE
     Dosage: UNK
  5. RANITIDINE. [Suspect]
     Active Substance: RANITIDINE
     Indication: INTESTINAL ULCER
     Dosage: 150 MG, WE
     Route: 065
     Dates: start: 199702, end: 202002
  6. ZANTAC [Suspect]
     Active Substance: RANITIDINE HYDROCHLORIDE
     Indication: INTESTINAL ULCER
     Dosage: 75 MG BOTH
     Route: 065
     Dates: start: 198301, end: 202002
  7. RANITIDINE. [Suspect]
     Active Substance: RANITIDINE
     Dosage: UNK
  8. ZANTAC [Suspect]
     Active Substance: RANITIDINE HYDROCHLORIDE
     Dosage: 150 MG, WE
     Route: 065
     Dates: start: 198301, end: 202002
  9. RANITIDINE CAPSULE [Suspect]
     Active Substance: RANITIDINE
     Dosage: 75 MG BOTH
     Route: 065
     Dates: start: 198301, end: 202002
  10. ZANTAC [Suspect]
     Active Substance: RANITIDINE HYDROCHLORIDE
     Dosage: 75 MG BOTH
     Route: 065
     Dates: start: 198301, end: 202002
  11. ZANTAC [Suspect]
     Active Substance: RANITIDINE HYDROCHLORIDE
     Dosage: 150 MG, WE
     Route: 065
     Dates: start: 198301, end: 202002
  12. RANITIDINE CAPSULE [Suspect]
     Active Substance: RANITIDINE
     Indication: INTESTINAL ULCER
     Dosage: 75 MG BOTH
     Route: 065
     Dates: start: 198301, end: 202002
  13. RANITIDINE. [Suspect]
     Active Substance: RANITIDINE
     Indication: INTESTINAL ULCER
     Dosage: 150 MG, WE
     Route: 065
     Dates: start: 199702, end: 202002
  14. RANITIDINE. [Suspect]
     Active Substance: RANITIDINE
     Dosage: UNK
  15. ZANTAC [Suspect]
     Active Substance: RANITIDINE HYDROCHLORIDE
     Dosage: 75 MG BOTH
     Route: 065
     Dates: start: 198301, end: 202002
  16. ZANTAC [Suspect]
     Active Substance: RANITIDINE HYDROCHLORIDE
     Indication: INTESTINAL ULCER
     Dosage: 75 MG BOTH
     Route: 065
     Dates: start: 198301, end: 202002

REACTIONS (1)
  - Prostate cancer [Unknown]
